FAERS Safety Report 10615727 (Version 1)
Quarter: 2014Q4

REPORT INFORMATION
  Report Type: Spontaneous
  Country: US (occurrence: None)
  Receive Date: 20141125
  Receipt Date: 20141125
  Transmission Date: 20150529
  Serious: Yes (Hospitalization)
  Sender: FDA-Public Use
  Company Number: None

PATIENT
  Age: 43 Year
  Sex: Female
  Weight: 56.7 kg

DRUGS (2)
  1. BACLOFEN. [Concomitant]
     Active Substance: BACLOFEN
  2. RITUXAN [Suspect]
     Active Substance: RITUXIMAB
     Dosage: OVER 24 HOURS
     Route: 042
     Dates: start: 20141022, end: 20141022

REACTIONS (4)
  - Panic reaction [None]
  - Pruritus [None]
  - Anxiety [None]
  - Skin burning sensation [None]

NARRATIVE: CASE EVENT DATE: 20141022
